FAERS Safety Report 4823987-1 (Version None)
Quarter: 2005Q4

REPORT INFORMATION
  Report Type: 
  Country: None (occurrence: None)
  Receive Date: 20051107
  Receipt Date: 20051025
  Transmission Date: 20060501
  Serious: Yes (Hospitalization)
  Sender: FDA-Public Use
  Company Number: 2005146282

PATIENT
  Age: 62 Year
  Sex: Female

DRUGS (14)
  1. PREDNISONE [Suspect]
     Indication: RHEUMATOID ARTHRITIS
     Dosage: 5 MG (5 MG, 1 IN 1 D), ORAL
     Route: 048
     Dates: start: 19900101
  2. KINERET [Suspect]
     Indication: RHEUMATOID ARTHRITIS
     Dosage: 100 MG (100 MG, 1 IN 1 D), SUBCUTANEOUS
     Route: 058
     Dates: start: 20020129, end: 20050615
  3. ACTONEL [Concomitant]
  4. PANTOPRAZOLE SODIUM [Concomitant]
  5. DIGOXIN [Concomitant]
  6. PAROXETINE HCL [Concomitant]
  7. GLYBURIDE [Concomitant]
  8. CALCIUM WITH VITAMIN D (CALCIUM PHOSPHATE, CALCIUM SODIUM LACTATE, ERG [Concomitant]
  9. LANSOPRAZOLE [Concomitant]
  10. FENTANYL [Concomitant]
  11. MUILTIVITAMINS (MULTIVITAMINS) [Concomitant]
  12. DOCUSATE SODIUM (DOCUSATE SODIUM) [Concomitant]
  13. OXYBUTYNIN CHLORIDE [Concomitant]
  14. DESLORATADINE (DESLORATADINE) [Concomitant]

REACTIONS (4)
  - ARTHRITIS INFECTIVE [None]
  - MEDICAL DEVICE REMOVAL [None]
  - SKIN INFECTION [None]
  - STAPHYLOCOCCAL INFECTION [None]
